FAERS Safety Report 12709578 (Version 1)
Quarter: 2016Q3

REPORT INFORMATION
  Report Type: Spontaneous
  Country: US (occurrence: None)
  Receive Date: 20160901
  Receipt Date: 20160901
  Transmission Date: 20161109
  Serious: No
  Sender: FDA-Public Use
  Company Number: None

PATIENT
  Age: 59 Year
  Sex: Female

DRUGS (8)
  1. KEFLEX [Concomitant]
     Active Substance: CEPHALEXIN
  2. ALEVE [Concomitant]
     Active Substance: NAPROXEN SODIUM
  3. BONIVA [Concomitant]
     Active Substance: IBANDRONATE SODIUM
  4. TYLENOL [Concomitant]
     Active Substance: ACETAMINOPHEN
  5. BACLOFEN. [Concomitant]
     Active Substance: BACLOFEN
  6. REBIF [Suspect]
     Active Substance: INTERFERON BETA-1A
     Indication: MULTIPLE SCLEROSIS
     Route: 058
     Dates: start: 20080507
  7. METHYLPRED [Concomitant]
     Active Substance: METHYLPREDNISOLONE
  8. VENLAFAXINE [Concomitant]
     Active Substance: VENLAFAXINE HYDROCHLORIDE

REACTIONS (1)
  - Depression [None]

NARRATIVE: CASE EVENT DATE: 201608
